FAERS Safety Report 8511970-4 (Version None)
Quarter: 2012Q2

REPORT INFORMATION
  Report Type: 
  Country: None (occurrence: None)
  Receive Date: 20120405
  Receipt Date: 20081020
  Transmission Date: 20120825
  Serious: Yes (Life-Threatening, Hospitalization, Disabling, Other)
  Sender: FDA-Public Use
  Company Number: PHEH2008US06804

PATIENT
  Age: 61 Year
  Sex: Female

DRUGS (6)
  1. PREMARIN [Concomitant]
  2. TOPAMAX [Concomitant]
  3. RECLAST [Suspect]
     Indication: OSTEOPOROSIS
     Dosage: 5 MG IV YEARLY
     Route: 042
     Dates: start: 20080717, end: 20080717
  4. ANAFRANIL [Concomitant]
  5. ZETIA [Concomitant]
  6. MAXALT [Concomitant]

REACTIONS (10)
  - OEDEMA [None]
  - PYREXIA [None]
  - ELECTROLYTE IMBALANCE [None]
  - URINE OUTPUT DECREASED [None]
  - RENAL FAILURE ACUTE [None]
  - DISORIENTATION [None]
  - LETHARGY [None]
  - CONFUSIONAL STATE [None]
  - FATIGUE [None]
  - DEHYDRATION [None]
